FAERS Safety Report 18536588 (Version 1)
Quarter: 2020Q4

REPORT INFORMATION
  Report Type: Spontaneous
  Country: US (occurrence: US)
  Receive Date: 20201124
  Receipt Date: 20201124
  Transmission Date: 20210114
  Serious: Yes (Hospitalization, Other)
  Sender: FDA-Public Use
  Company Number: US-009507513-2011USA010579

PATIENT

DRUGS (1)
  1. PRINIVIL [Suspect]
     Active Substance: LISINOPRIL
     Dosage: 10 MILLIGRAM, STRENGTH REPORTED AS 2.5 MG, 5 MG, 10 MG, 20 MG, 30 MG, 40 MG
     Route: 048

REACTIONS (1)
  - Angioedema [Unknown]
